FAERS Safety Report 17201301 (Version 2)
Quarter: 2020Q1

REPORT INFORMATION
  Report Type: Spontaneous
  Country: CN (occurrence: CN)
  Receive Date: 20191226
  Receipt Date: 20200103
  Transmission Date: 20200409
  Serious: Yes (Hospitalization, Other)
  Sender: FDA-Public Use
  Company Number: CN-SA-2019SA342465

PATIENT
  Age: 18 Year
  Sex: Female

DRUGS (10)
  1. POTASSIUM CHLORIDE. [Concomitant]
     Active Substance: POTASSIUM CHLORIDE
     Indication: MULTIPLE SCLEROSIS
     Dosage: 10 ML, TID
     Route: 048
     Dates: start: 20191121
  2. CALTRATE [Concomitant]
     Active Substance: CALCIUM CARBONATE
     Indication: SUPPLEMENTATION THERAPY
  3. CALTRATE [Concomitant]
     Active Substance: CALCIUM CARBONATE
     Indication: OSTEOPOROSIS
  4. AUBAGIO [Suspect]
     Active Substance: TERIFLUNOMIDE
     Indication: MULTIPLE SCLEROSIS
     Dosage: 14 MG, QD
     Route: 048
     Dates: start: 20190726
  5. PREDNISONE. [Concomitant]
     Active Substance: PREDNISONE
     Indication: MULTIPLE SCLEROSIS
     Dosage: 50 MG, QD
     Route: 048
     Dates: start: 20191121
  6. FAMOTIDINE. [Concomitant]
     Active Substance: FAMOTIDINE
     Indication: MULTIPLE SCLEROSIS
     Dosage: 20 MG, BID
     Route: 048
     Dates: start: 20191121
  7. METHYLPREDNISOLONE. [Concomitant]
     Active Substance: METHYLPREDNISOLONE
  8. PANTOPRAZOLE [Concomitant]
     Active Substance: PANTOPRAZOLE
     Indication: HYPERCHLORHYDRIA
  9. SUCRALFATE. [Concomitant]
     Active Substance: SUCRALFATE
     Indication: MULTIPLE SCLEROSIS
     Dosage: 10 ML, TID
     Route: 048
     Dates: start: 20191121
  10. CALTRATE [Concomitant]
     Active Substance: CALCIUM CARBONATE
     Indication: MULTIPLE SCLEROSIS
     Dosage: 600 MG, QD
     Route: 048
     Dates: start: 20191121

REACTIONS (6)
  - Hypoaesthesia [Recovered/Resolved]
  - Muscular weakness [Recovered/Resolved]
  - CSF test abnormal [Recovered/Resolved]
  - Multiple sclerosis relapse [Recovered/Resolved]
  - Condition aggravated [Recovered/Resolved]
  - Visual impairment [Recovered/Resolved]

NARRATIVE: CASE EVENT DATE: 2019
